FAERS Safety Report 10400881 (Version 1)
Quarter: 2014Q3

REPORT INFORMATION
  Report Type: Spontaneous
  Country: US (occurrence: US)
  Receive Date: 20140821
  Receipt Date: 20140821
  Transmission Date: 20150326
  Serious: Yes (Hospitalization)
  Sender: FDA-Public Use
  Company Number: US-B.I. PHARMACEUTICALS,INC./RIDGEFIELD-2014-BI-37964BP

PATIENT
  Age: 79 Year
  Sex: Female

DRUGS (3)
  1. PLAVIX [Concomitant]
     Active Substance: CLOPIDOGREL BISULFATE
     Route: 065
     Dates: end: 20120416
  2. ASPIRIN. [Concomitant]
     Active Substance: ASPIRIN
     Route: 065
     Dates: end: 20120416
  3. PRADAXA [Suspect]
     Active Substance: DABIGATRAN ETEXILATE MESYLATE
     Indication: ATRIAL FIBRILLATION
     Route: 065
     Dates: end: 20120416

REACTIONS (3)
  - Haematocrit decreased [Not Recovered/Not Resolved]
  - Haemoglobin decreased [Not Recovered/Not Resolved]
  - Lower gastrointestinal haemorrhage [Unknown]

NARRATIVE: CASE EVENT DATE: 20120414
